FAERS Safety Report 7504080-6 (Version None)
Quarter: 2011Q2

REPORT INFORMATION
  Report Type: 
  Country: None (occurrence: None)
  Receive Date: 20110525
  Receipt Date: 20110516
  Transmission Date: 20111010
  Serious: Yes (Hospitalization)
  Sender: FDA-Public Use
  Company Number: JP-ASTRAZENECA-2011SE31071

PATIENT
  Age: 84 Year
  Sex: Female

DRUGS (6)
  1. JANUVIA [Concomitant]
     Indication: DIABETES MELLITUS
     Route: 048
     Dates: start: 20091222
  2. SUNRYTHM [Concomitant]
     Route: 048
     Dates: start: 20101022
  3. AMARYL [Concomitant]
     Indication: DIABETES MELLITUS
     Route: 048
     Dates: start: 20091124
  4. LANIRAPID [Concomitant]
     Route: 048
     Dates: start: 20101022
  5. WARFARIN SODIUM [Concomitant]
     Route: 048
     Dates: start: 20101022
  6. CRESTOR [Suspect]
     Route: 048
     Dates: start: 20101222

REACTIONS (1)
  - LUMBAR VERTEBRAL FRACTURE [None]
